FAERS Safety Report 4888688-2 (Version None)
Quarter: 2005Q4

REPORT INFORMATION
  Report Type: 
  Country: None (occurrence: None)
  Receive Date: 20051215
  Receipt Date: 20050825
  Transmission Date: 20060501
  Serious: Yes (Hospitalization)
  Sender: FDA-Public Use
  Company Number: 2005078504

PATIENT
  Age: 70 Year
  Sex: Male
  Weight: 95.2554 kg

DRUGS (5)
  1. BEXTRA [Suspect]
     Indication: ARTHRITIS
     Dosage: 20 MG (20 MG, 1 IN 1 D), ORAL
     Route: 048
  2. LANTUS [Concomitant]
  3. WARFARIN SODIUM [Concomitant]
  4. LIPITOR [Concomitant]
  5. LISINOPRIL [Concomitant]

REACTIONS (1)
  - DEEP VEIN THROMBOSIS [None]
